FAERS Safety Report 18149539 (Version 1)
Quarter: 2020Q3

REPORT INFORMATION
  Report Type: Spontaneous
  Country: US (occurrence: US)
  Receive Date: 20200814
  Receipt Date: 20200814
  Transmission Date: 20201103
  Serious: No
  Sender: FDA-Public Use
  Company Number: US-AMGEN-USASP2020126554

PATIENT
  Age: 82 Year
  Sex: Female

DRUGS (3)
  1. GLIMEPIRIDE. [Concomitant]
     Active Substance: GLIMEPIRIDE
     Indication: DIABETES MELLITUS
     Dosage: UNK
  2. METFORMIN [Concomitant]
     Active Substance: METFORMIN HYDROCHLORIDE
     Indication: DIABETES MELLITUS
     Dosage: UNK
  3. OTEZLA [Suspect]
     Active Substance: APREMILAST
     Indication: PSORIATIC ARTHROPATHY
     Dosage: UNK UNK, UNK ( TITRATION STARTER KIT)
     Route: 065
     Dates: start: 20200724

REACTIONS (5)
  - Intervertebral disc protrusion [Unknown]
  - Diarrhoea [Not Recovered/Not Resolved]
  - Hot flush [Not Recovered/Not Resolved]
  - Meniscus injury [Unknown]
  - Nasopharyngitis [Not Recovered/Not Resolved]

NARRATIVE: CASE EVENT DATE: 2020
